FAERS Safety Report 23867665 (Version 1)
Quarter: 2024Q2

REPORT INFORMATION
  Report Type: Spontaneous
  Country: US (occurrence: US)
  Receive Date: 20240517
  Receipt Date: 20240517
  Transmission Date: 20240715
  Serious: No
  Sender: FDA-Public Use
  Company Number: US-APOTEX-2024AP005847

PATIENT
  Age: 15 Year
  Sex: Male

DRUGS (25)
  1. OLANZAPINE [Suspect]
     Active Substance: OLANZAPINE
     Indication: Product used for unknown indication
     Dosage: 5 MILLIGRAM, BID
     Route: 048
  2. OLANZAPINE [Suspect]
     Active Substance: OLANZAPINE
     Dosage: 5 MILLIGRAM, BID
     Route: 048
  3. DIVALPROEX SODIUM [Suspect]
     Active Substance: DIVALPROEX SODIUM
     Indication: Product used for unknown indication
     Dosage: 1000 MILLIGRAM, Q.H.S.
     Route: 048
  4. DIVALPROEX SODIUM [Suspect]
     Active Substance: DIVALPROEX SODIUM
     Dosage: 1000 MILLIGRAM, Q.H.S.
     Route: 048
  5. RISPERIDONE [Suspect]
     Active Substance: RISPERIDONE
     Indication: Product used for unknown indication
     Dosage: 2 MILLIGRAM, Q.AM
     Route: 048
  6. RISPERIDONE [Suspect]
     Active Substance: RISPERIDONE
     Dosage: 3 MILLIGRAM, Q.H.S.
     Route: 048
  7. RISPERIDONE [Suspect]
     Active Substance: RISPERIDONE
     Dosage: 3 MILLIGRAM, BID
     Route: 048
  8. RISPERIDONE [Suspect]
     Active Substance: RISPERIDONE
     Dosage: 1.5 MILLIGRAM, BID
     Route: 048
  9. TRAZODONE [Suspect]
     Active Substance: TRAZODONE HYDROCHLORIDE
     Indication: Product used for unknown indication
     Dosage: 50 MILLIGRAM, Q.H.S.
     Route: 048
  10. DIVALPROEX SODIUM [Suspect]
     Active Substance: DIVALPROEX SODIUM
     Indication: Product used for unknown indication
     Dosage: 500 MILLIGRAM, Q.AM
     Route: 048
  11. DIVALPROEX SODIUM [Suspect]
     Active Substance: DIVALPROEX SODIUM
     Dosage: 250 MILLIGRAM, Q.H.S.
     Route: 048
  12. DIVALPROEX SODIUM [Suspect]
     Active Substance: DIVALPROEX SODIUM
     Dosage: 500 MILLIGRAM, BID
     Route: 048
  13. DIVALPROEX SODIUM [Suspect]
     Active Substance: DIVALPROEX SODIUM
     Dosage: 250 MILLIGRAM, BID
     Route: 048
  14. HALOPERIDOL [Suspect]
     Active Substance: HALOPERIDOL
     Indication: Psychotic symptom
     Dosage: 2 MILLIGRAM, BID
     Route: 048
  15. HALOPERIDOL [Suspect]
     Active Substance: HALOPERIDOL
     Dosage: 4 MILLIGRAM, BID
     Route: 048
  16. HALOPERIDOL [Suspect]
     Active Substance: HALOPERIDOL
     Dosage: 5 MILLIGRAM, Q.AM
     Route: 048
  17. HALOPERIDOL [Suspect]
     Active Substance: HALOPERIDOL
     Dosage: 7.5 MILLIGRAM, Q.H.S.
     Route: 048
  18. CLOZAPINE [Concomitant]
     Active Substance: CLOZAPINE
     Indication: Product used for unknown indication
     Dosage: 25 MILLIGRAM, BID
     Route: 048
  19. BENZTROPINE [Concomitant]
     Active Substance: BENZTROPINE
     Indication: Prophylaxis
     Dosage: 0.5 MILLIGRAM, BID
     Route: 048
  20. BENZTROPINE [Concomitant]
     Active Substance: BENZTROPINE
     Indication: Extrapyramidal disorder
     Dosage: 0.5 MILLIGRAM, Q.H.S.
     Route: 048
  21. BENZTROPINE [Concomitant]
     Active Substance: BENZTROPINE
     Dosage: 1 MILLIGRAM, QD
     Route: 048
  22. BENZTROPINE [Concomitant]
     Active Substance: BENZTROPINE
     Dosage: 2 MILLIGRAM, BID
     Route: 048
  23. HYDROXYZINE [Concomitant]
     Active Substance: HYDROXYZINE HYDROCHLORIDE
     Indication: Anxiety
     Dosage: 25 MILLIGRAM, BID (AS NEEDED)
     Route: 048
  24. VALPROIC ACID [Concomitant]
     Active Substance: VALPROIC ACID
     Indication: Product used for unknown indication
     Dosage: 500 MILLIGRAM, Q.AM
     Route: 065
  25. VALPROIC ACID [Concomitant]
     Active Substance: VALPROIC ACID
     Dosage: 250 MILLIGRAM, EVERY AFTERNOON
     Route: 065

REACTIONS (6)
  - Abdominal pain upper [Unknown]
  - Treatment noncompliance [Unknown]
  - Liver function test increased [Recovered/Resolved]
  - Hypertransaminasaemia [Recovered/Resolved]
  - Extrapyramidal disorder [Recovered/Resolved]
  - Therapeutic product effect incomplete [Unknown]
